FAERS Safety Report 4518073-4 (Version None)
Quarter: 2004Q4

REPORT INFORMATION
  Report Type: 
  Country: None (occurrence: None)
  Receive Date: 20041203
  Receipt Date: 20041112
  Transmission Date: 20050328
  Serious: Yes (Hospitalization)
  Sender: FDA-Public Use
  Company Number: JP-GLAXOSMITHKLINE-B0357145A

PATIENT
  Age: 53 Year
  Sex: Male

DRUGS (12)
  1. MODACIN [Suspect]
     Indication: INFECTION
     Dosage: 1G TWICE PER DAY
     Route: 042
     Dates: start: 20041025, end: 20041026
  2. PREDONINE [Suspect]
     Indication: COLITIS ULCERATIVE
     Dosage: 20MG VARIABLE DOSE
     Route: 042
     Dates: start: 20041021, end: 20041026
  3. AMINOFLUID [Concomitant]
     Route: 042
  4. VITAMEDIN [Concomitant]
     Route: 065
  5. THIAMINE [Concomitant]
     Route: 030
  6. SALAZOPYRIN [Concomitant]
     Route: 065
  7. MEILAX [Concomitant]
     Route: 048
  8. MUCOSTA [Concomitant]
     Route: 048
  9. LENDORMIN [Concomitant]
     Route: 048
  10. ALTAT [Concomitant]
     Route: 065
  11. SAIREI-TO [Concomitant]
     Route: 048
  12. MENAMIN [Concomitant]
     Route: 030
     Dates: start: 20041022, end: 20041023

REACTIONS (6)
  - BLOOD CREATINE PHOSPHOKINASE INCREASED [None]
  - MUSCLE DISORDER [None]
  - MYALGIA [None]
  - MYOPATHY [None]
  - MYOSITIS [None]
  - PYREXIA [None]
